FAERS Safety Report 11620138 (Version 2)
Quarter: 2015Q4

REPORT INFORMATION
  Report Type: Spontaneous
  Country: US (occurrence: US)
  Receive Date: 20151012
  Receipt Date: 20151015
  Transmission Date: 20160304
  Serious: No
  Sender: FDA-Public Use
  Company Number: US-SA-2015SA117248

PATIENT
  Age: 68 Year
  Sex: Female

DRUGS (3)
  1. AFREZZA [Suspect]
     Active Substance: INSULIN HUMAN
     Indication: TYPE 2 DIABETES MELLITUS
     Dosage: DOSE: DAILY DOSE IS 20 U (2-8 MG, 1-4 MG) AND USES AFREZZA 2 TIMES A WEEK
     Route: 065
  2. AFREZZA [Suspect]
     Active Substance: INSULIN HUMAN
     Indication: TYPE 2 DIABETES MELLITUS
     Dosage: DOSE: DAILY DOSE IS 20 U (2-8 MG, 1-4 MG) AND USES AFREZZA 2 TIMES A WEEK
     Route: 065
  3. AFREZZA [Suspect]
     Active Substance: INSULIN HUMAN
     Indication: TYPE 2 DIABETES MELLITUS
     Dosage: DOSE: DAILY DOSE IS 20 U (2-8 MG, 1-4 MG) AND USES AFREZZA 2 TIMES A WEEK
     Route: 065

REACTIONS (2)
  - Throat irritation [Not Recovered/Not Resolved]
  - Inappropriate schedule of drug administration [Unknown]
